FAERS Safety Report 5023459-8 (Version None)
Quarter: 2006Q2

REPORT INFORMATION
  Report Type: 
  Country: None (occurrence: None)
  Receive Date: 20060612
  Receipt Date: 20060531
  Transmission Date: 20061013
  Serious: Yes (Hospitalization)
  Sender: FDA-Public Use
  Company Number: US-SANOFI-SYNTHELABO-A03200603516

PATIENT
  Sex: Male
  Weight: 64.4 kg

DRUGS (5)
  1. TOPROL-XL [Concomitant]
     Route: 048
     Dates: start: 20060317
  2. ASPIRIN [Concomitant]
     Route: 048
     Dates: start: 20060317
  3. PLAVIX [Suspect]
     Indication: CORONARY ARTERIAL STENT INSERTION
     Route: 048
     Dates: start: 20060317
  4. FERROUS SULFATE TAB [Concomitant]
     Route: 048
  5. COLACE [Concomitant]
     Route: 048

REACTIONS (6)
  - CONCUSSION [None]
  - FALL [None]
  - HAEMOTHORAX [None]
  - LOSS OF CONSCIOUSNESS [None]
  - PNEUMOTHORAX [None]
  - RIB FRACTURE [None]
